FAERS Safety Report 7005994-6 (Version None)
Quarter: 2010Q3

REPORT INFORMATION
  Report Type: 
  Country: None (occurrence: None)
  Receive Date: 20100921
  Receipt Date: 20100909
  Transmission Date: 20110219
  Serious: Yes (Death, Other)
  Sender: FDA-Public Use
  Company Number: PL-WYE-H17426510

PATIENT
  Age: 41 Year
  Sex: Male

DRUGS (12)
  1. TYGACIL [Suspect]
     Indication: PSEUDOMONAS INFECTION
     Dosage: UNKNOWN
  2. TYGACIL [Suspect]
     Indication: STENOTROPHOMONAS INFECTION
  3. TYGACIL [Suspect]
     Indication: ESCHERICHIA INFECTION
  4. TYGACIL [Suspect]
     Indication: ENTEROCOCCAL INFECTION
  5. TYGACIL [Suspect]
     Indication: CANDIDIASIS
  6. METRONIDAZOLE [Suspect]
     Dosage: UNKNOWN
  7. ZYVOX [Suspect]
     Dosage: UNKNOWN
  8. DIFLUCAN [Suspect]
     Dosage: UNKNOWN
  9. BISEPTOL [Suspect]
     Dosage: UNKNOWN
  10. VFEND [Suspect]
     Dosage: UNKNOWN
  11. TAZOCIN [Suspect]
     Dosage: UNKNOWN
  12. MEROPENEM [Suspect]
     Dosage: UNKNOWN

REACTIONS (2)
  - DISEASE PROGRESSION [None]
  - PATHOGEN RESISTANCE [None]
